FAERS Safety Report 5426266-7 (Version None)
Quarter: 2007Q3

REPORT INFORMATION
  Report Type: 
  Country: None (occurrence: None)
  Receive Date: 20070731
  Receipt Date: 20070430
  Transmission Date: 20080115
  Serious: No
  Sender: FDA-Public Use
  Company Number: 2007PV030579

PATIENT
  Age: 56 Year
  Sex: Female
  Weight: 113.4 kg

DRUGS (10)
  1. EXENATIDE(EXENATIDE) PEN, DISPOSABLE [Suspect]
     Indication: WEIGHT DECREASED
     Dosage: 10 UG, 2/D, SUBCUTANEOUS; 5 UG, 2/D, SUBCUTANEOUS
     Route: 058
     Dates: start: 20060101, end: 20060301
  2. EXENATIDE(EXENATIDE) PEN, DISPOSABLE [Suspect]
     Indication: WEIGHT DECREASED
     Dosage: 10 UG, 2/D, SUBCUTANEOUS; 5 UG, 2/D, SUBCUTANEOUS
     Route: 058
     Dates: start: 20060301, end: 20061201
  3. EXENATIDE PEN, DISPOSABLE DEVICE (EXENATIDE PEN) [Concomitant]
  4. ZAROXOLYN [Concomitant]
  5. BUMEX [Concomitant]
  6. DRISDOL [Concomitant]
  7. SENSIPAR (CINACALCET HYDROCHLORIDE) [Concomitant]
  8. TRICOR [Concomitant]
  9. LIPITOR [Concomitant]
  10. DIOVAN (HYDROCHLOROTHIAZIDE, VALSARTAN) [Concomitant]

REACTIONS (8)
  - BLOOD CREATININE INCREASED [None]
  - BLOOD PARATHYROID HORMONE INCREASED [None]
  - BLOOD UREA INCREASED [None]
  - DECREASED APPETITE [None]
  - INJECTION SITE EXTRAVASATION [None]
  - NAUSEA [None]
  - RENAL FAILURE [None]
  - WEIGHT DECREASED [None]
